FAERS Safety Report 12983934 (Version 1)
Quarter: 2016Q4

REPORT INFORMATION
  Report Type: Spontaneous
  Country: US (occurrence: US)
  Receive Date: 20161129
  Receipt Date: 20161129
  Transmission Date: 20170207
  Serious: No
  Sender: FDA-Public Use
  Company Number: US-ENDO PHARMACEUTICALS INC.-2016-005277

PATIENT
  Age: 72 Year
  Sex: Male
  Weight: 93.07 kg

DRUGS (5)
  1. LANSOPRAZOLE. [Concomitant]
     Active Substance: LANSOPRAZOLE
     Indication: GASTROOESOPHAGEAL REFLUX DISEASE
  2. TESTIM [Suspect]
     Active Substance: TESTOSTERONE
     Indication: SLUGGISHNESS
  3. TESTIM [Suspect]
     Active Substance: TESTOSTERONE
     Indication: OSTEOPENIA
     Route: 061
     Dates: start: 20160802
  4. ATENOLOL TABLETS 25 MG [Concomitant]
     Indication: VENTRICULAR EXTRASYSTOLES
  5. TESTIM [Suspect]
     Active Substance: TESTOSTERONE
     Indication: BLOOD TESTOSTERONE DECREASED

REACTIONS (3)
  - Off label use [Unknown]
  - Body height decreased [Unknown]
  - Drug administered at inappropriate site [Unknown]

NARRATIVE: CASE EVENT DATE: 20160802
